FAERS Safety Report 5834929-4 (Version None)
Quarter: 2008Q3

REPORT INFORMATION
  Report Type: 
  Country: None (occurrence: None)
  Receive Date: 20080804
  Receipt Date: 20080717
  Transmission Date: 20090109
  Serious: Yes (Hospitalization)
  Sender: FDA-Public Use
  Company Number: 8035010

PATIENT
  Age: 13 Year
  Sex: Male

DRUGS (1)
  1. EQUASYM [Suspect]
     Dates: start: 20080101, end: 20080701

REACTIONS (4)
  - ANGIOPATHY [None]
  - CIRCULATORY COLLAPSE [None]
  - INFLAMMATION [None]
  - SENSORY DISTURBANCE [None]
